FAERS Safety Report 24539739 (Version 1)
Quarter: 2024Q4

REPORT INFORMATION
  Report Type: Spontaneous
  Country: CA (occurrence: CA)
  Receive Date: 20241023
  Receipt Date: 20241023
  Transmission Date: 20250114
  Serious: Yes (Other)
  Sender: NOVARTIS
  Company Number: CA-002147023-NVSC2024CA206359

PATIENT
  Sex: Female

DRUGS (1)
  1. KESIMPTA [Suspect]
     Active Substance: OFATUMUMAB
     Indication: Multiple sclerosis
     Dosage: 20.0 MG, QMO (SOLUTION SUBCUTANEOUS)
     Route: 058

REACTIONS (3)
  - Bronchitis [Recovering/Resolving]
  - Malaise [Recovering/Resolving]
  - Pharyngitis [Recovering/Resolving]
